FAERS Safety Report 8958357 (Version 1)
Quarter: 2012Q4

REPORT INFORMATION
  Report Type: 
  Country: US (occurrence: US)
  Receive Date: 20121210
  Receipt Date: 20121210
  Transmission Date: 20130627
  Serious: Yes (Hospitalization)
  Sender: FDA-Public Use
  Company Number: US-GLAXOSMITHKLINE-A0886341A

PATIENT
  Age: 37 Year
  Sex: Male
  Weight: 147.5 kg

DRUGS (3)
  1. AVANDIA [Suspect]
     Indication: TYPE 2 DIABETES MELLITUS
     Dosage: 8MG Twice per day
     Route: 048
     Dates: end: 200903
  2. AVANDARYL [Suspect]
     Indication: TYPE 2 DIABETES MELLITUS
     Route: 048
  3. LISINOPRIL [Concomitant]

REACTIONS (1)
  - Acute myocardial infarction [Not Recovered/Not Resolved]
